FAERS Safety Report 19149706 (Version 2)
Quarter: 2021Q4

REPORT INFORMATION
  Report Type: Spontaneous
  Country: PE (occurrence: PE)
  Receive Date: 20210417
  Receipt Date: 20211029
  Transmission Date: 20220304
  Serious: Yes (Hospitalization, Other)
  Sender: FDA-Public Use
  Company Number: PE-LUPIN PHARMACEUTICALS INC.-2021-04718

PATIENT
  Age: 40 Year
  Sex: Female

DRUGS (9)
  1. DOXYCYCLINE [Suspect]
     Active Substance: DOXYCYCLINE
     Indication: Mycobacterial infection
     Dosage: 100 MILLIGRAM, BID
     Route: 065
  2. CIPROFLOXACIN [Suspect]
     Active Substance: CIPROFLOXACIN
     Indication: Mycobacterial infection
     Dosage: 750 MILLIGRAM, BID
     Route: 048
  3. CIPROFLOXACIN [Suspect]
     Active Substance: CIPROFLOXACIN
     Dosage: 500 MILLIGRAM, BID
     Route: 048
  4. AMIKACIN [Suspect]
     Active Substance: AMIKACIN
     Indication: Mycobacterial infection
     Dosage: 25 MILLIGRAM/KILOGRAM-THREE TIMES A WEEK
     Route: 042
  5. AMIKACIN [Suspect]
     Active Substance: AMIKACIN
     Dosage: 1500 MILLIGRAM-THREE TIMES A WEEK
     Route: 042
  6. CEFOXITIN [Suspect]
     Active Substance: CEFOXITIN SODIUM
     Indication: Mycobacterial infection
     Dosage: 2 GRAM, TID
     Route: 065
  7. CILASTATIN SODIUM\IMIPENEM [Suspect]
     Active Substance: CILASTATIN SODIUM\IMIPENEM
     Indication: Mycobacterial infection
     Dosage: UNK
     Route: 042
  8. CILASTATIN SODIUM\IMIPENEM [Suspect]
     Active Substance: CILASTATIN SODIUM\IMIPENEM
     Dosage: 500 MILLIGRAM, QID
     Route: 042
  9. VENLAFAXINE [Concomitant]
     Active Substance: VENLAFAXINE HYDROCHLORIDE
     Indication: Depression
     Dosage: UNK
     Route: 065

REACTIONS (3)
  - Drug reaction with eosinophilia and systemic symptoms [Recovered/Resolved]
  - Tendon disorder [Unknown]
  - Nausea [Unknown]
